FAERS Safety Report 7811100-8 (Version None)
Quarter: 2011Q4

REPORT INFORMATION
  Report Type: 
  Country: None (occurrence: None)
  Receive Date: 20111013
  Receipt Date: 20111007
  Transmission Date: 20120403
  Serious: Yes (Life-Threatening)
  Sender: FDA-Public Use
  Company Number: PL-TYCO HEALTHCARE/MALLINCKRODT-T201102015

PATIENT
  Sex: Male

DRUGS (2)
  1. OPTIRAY 160 [Suspect]
     Dosage: 100 ML, SINGLE
     Route: 042
     Dates: start: 20110826, end: 20110826
  2. CLEMASTINUM [Concomitant]
     Indication: PREMEDICATION
     Dosage: 2 MG, UNK
     Route: 042
     Dates: start: 20110826, end: 20110826

REACTIONS (2)
  - HYPERSENSITIVITY [None]
  - ANAPHYLACTIC REACTION [None]
